FAERS Safety Report 14756310 (Version 2)
Quarter: 2018Q2

REPORT INFORMATION
  Report Type: Spontaneous
  Country: IE (occurrence: IE)
  Receive Date: 20180413
  Receipt Date: 20180420
  Transmission Date: 20180711
  Serious: Yes (Death, Other)
  Sender: FDA-Public Use
  Company Number: IE-MYLANLABS-2018M1024674

PATIENT
  Age: 48 Year
  Sex: Male

DRUGS (1)
  1. CLOZARIL [Suspect]
     Active Substance: CLOZAPINE
     Indication: SCHIZOPHRENIA
     Dosage: UNK
     Route: 048
     Dates: start: 20000901

REACTIONS (5)
  - Amputation [Unknown]
  - Myocardial infarction [Fatal]
  - Diabetes mellitus inadequate control [Unknown]
  - Cardiovascular disorder [Unknown]
  - Obesity [Unknown]

NARRATIVE: CASE EVENT DATE: 201803
